FAERS Safety Report 8415680-3 (Version None)
Quarter: 2012Q2

REPORT INFORMATION
  Report Type: 
  Country: None (occurrence: None)
  Receive Date: 20120606
  Receipt Date: 20120604
  Transmission Date: 20120825
  Serious: Yes (Other)
  Sender: FDA-Public Use
  Company Number: PHEH2012US009923

PATIENT
  Sex: Female
  Weight: 65 kg

DRUGS (3)
  1. CIPROFLOXACIN [Concomitant]
     Indication: NEUTROPENIA
     Dosage: 500 MG, BID
     Route: 048
     Dates: start: 20120507, end: 20120514
  2. TASIGNA [Suspect]
     Indication: CHRONIC MYELOID LEUKAEMIA
     Dosage: 400 MG, BID
     Route: 048
     Dates: start: 20120317, end: 20120507
  3. PROMETHAZINE [Concomitant]
     Indication: NAUSEA
     Dosage: 25 MG, QD
     Route: 048
     Dates: start: 20120322, end: 20120402

REACTIONS (4)
  - LEUKOPENIA [None]
  - ANAEMIA [None]
  - THROMBOCYTOPENIA [None]
  - NEUTROPENIA [None]
